FAERS Safety Report 6997489-0 (Version None)
Quarter: 2010Q3

REPORT INFORMATION
  Report Type: 
  Country: None (occurrence: None)
  Receive Date: 20100918
  Receipt Date: 20091021
  Transmission Date: 20110219
  Serious: No
  Sender: FDA-Public Use
  Company Number: US-WYE-H11816809

PATIENT
  Sex: Female
  Weight: 60.84 kg

DRUGS (1)
  1. PREMPRO [Suspect]
     Indication: HORMONE REPLACEMENT THERAPY
     Route: 048

REACTIONS (5)
  - BREAST PAIN [None]
  - MENORRHAGIA [None]
  - METRORRHAGIA [None]
  - PRODUCT SHAPE ISSUE [None]
  - PRODUCT SIZE ISSUE [None]
